FAERS Safety Report 6764512-8 (Version None)
Quarter: 2010Q2

REPORT INFORMATION
  Report Type: 
  Country: None (occurrence: None)
  Receive Date: 20100609
  Receipt Date: 20100324
  Transmission Date: 20101027
  Serious: No
  Sender: FDA-Public Use
  Company Number: 2010007310

PATIENT
  Age: 4 Year
  Sex: Female
  Weight: 22.6799 kg

DRUGS (1)
  1. CHILDREN'S ZYRTEC ALLERGY [Suspect]
     Indication: HYPERSENSITIVITY
     Dosage: TSP THEN HALF A CAP ORAL
     Route: 048
     Dates: start: 20100322, end: 20100323

REACTIONS (3)
  - NIGHTMARE [None]
  - SLEEP TERROR [None]
  - WRONG DRUG ADMINISTERED [None]
